FAERS Safety Report 10707037 (Version 1)
Quarter: 2015Q1

REPORT INFORMATION
  Report Type: Spontaneous
  Country: ES (occurrence: ES)
  Receive Date: 20150113
  Receipt Date: 20150113
  Transmission Date: 20150721
  Serious: Yes (Hospitalization)
  Sender: FDA-Public Use
  Company Number: ES-ASTRAZENECA-2015SE03606

PATIENT
  Age: 76 Year
  Sex: Male

DRUGS (6)
  1. ANTI ANGINAL TREATMENT [Concomitant]
     Indication: ACUTE CORONARY SYNDROME
  2. ACETYLSALICYLIC ACID [Concomitant]
     Active Substance: ASPIRIN
     Indication: ACUTE CORONARY SYNDROME
  3. TICAGRELOR [Suspect]
     Active Substance: TICAGRELOR
     Indication: ACUTE CORONARY SYNDROME
     Route: 048
  4. ORAL ANTIDIABETIC DRUGS [Concomitant]
     Indication: TYPE 2 DIABETES MELLITUS
     Route: 048
  5. INSULIN [Concomitant]
     Active Substance: INSULIN NOS
     Indication: TYPE 2 DIABETES MELLITUS
  6. LOW MOLECULAR WEIGHT HEPARIN [Concomitant]
     Active Substance: UNSPECIFIED INGREDIENT
     Indication: ACUTE CORONARY SYNDROME

REACTIONS (2)
  - Anaemia [Unknown]
  - Haematochezia [Unknown]
